FAERS Safety Report 13394936 (Version 1)
Quarter: 2017Q2

REPORT INFORMATION
  Report Type: Spontaneous
  Country: US (occurrence: US)
  Receive Date: 20170403
  Receipt Date: 20170403
  Transmission Date: 20170830
  Serious: No
  Sender: FDA-Public Use
  Company Number: US-B.I. PHARMACEUTICALS,INC./RIDGEFIELD-2017-BI-018263

PATIENT
  Age: 68 Year
  Sex: Female

DRUGS (15)
  1. FOLIC ACID. [Concomitant]
     Active Substance: FOLIC ACID
     Indication: PRODUCT USED FOR UNKNOWN INDICATION
     Dosage: QD;  FORM STRENGTH: 1MG
     Route: 048
  2. MULTIVITAMIN [Concomitant]
     Active Substance: VITAMINS
     Indication: PRODUCT USED FOR UNKNOWN INDICATION
     Dosage: QD;
     Route: 048
  3. LISINORIL [Concomitant]
     Active Substance: LISINOPRIL
     Indication: HYPERTENSION
     Dosage: QD;  FORM STRENGTH: 40MG
     Route: 048
     Dates: start: 1993
  4. RANITIDINE. [Concomitant]
     Active Substance: RANITIDINE
     Indication: ABDOMINAL DISCOMFORT
     Dosage: BID;  FORM STRENGTH: 150MG
     Route: 048
  5. IRON SUPPLEMENT [Concomitant]
     Active Substance: IRON
     Indication: PRODUCT USED FOR UNKNOWN INDICATION
     Route: 048
  6. ATORVASTATIN [Concomitant]
     Active Substance: ATORVASTATIN
     Indication: BLOOD CHOLESTEROL INCREASED
     Dosage: QD;  FORM STRENGTH: 80MG
     Route: 048
  7. HYDROCODONE/TYLENOL [Concomitant]
     Indication: ARTHRITIS
  8. GLYBURIDE. [Concomitant]
     Active Substance: GLYBURIDE
     Indication: TYPE 2 DIABETES MELLITUS
     Dosage: 2 PILLS AT THE SAME TIME QD;  FORM STRENGTH: 4MG
     Route: 048
  9. ATENOLOL. [Concomitant]
     Active Substance: ATENOLOL
     Indication: HYPERTENSION
     Dosage: QD;  FORM STRENGTH: 50MG
     Route: 048
     Dates: start: 2000
  10. PLAVIX [Concomitant]
     Active Substance: CLOPIDOGREL BISULFATE
     Indication: CEREBROVASCULAR ACCIDENT
     Dosage: QD;  FORM STRENGTH: 75MG
     Route: 048
     Dates: start: 2016
  11. GLYXAMBI [Suspect]
     Active Substance: EMPAGLIFLOZIN\LINAGLIPTIN
     Indication: TYPE 2 DIABETES MELLITUS
     Dosage: 1 QD;  FORM STRENGTH: 25 MG/ 5 MG; FORMULATION: TABLET? ADMINISTRATION CORRECT? YES ?ACTION(S) TAKEN
     Route: 048
     Dates: start: 201609
  12. FENOFIBRATE. [Concomitant]
     Active Substance: FENOFIBRATE
     Indication: PRODUCT USED FOR UNKNOWN INDICATION
     Dosage: QD;  FORM STRENGTH: 160MG
     Route: 048
  13. VITAMIN B12 [Concomitant]
     Active Substance: CYANOCOBALAMIN
     Indication: PRODUCT USED FOR UNKNOWN INDICATION
     Dosage: QD;  FORM STRENGTH: 1000MG
     Route: 048
  14. VITAMIN D3 [Concomitant]
     Active Substance: CHOLECALCIFEROL
     Indication: PRODUCT USED FOR UNKNOWN INDICATION
     Dosage: FORM STRENGTH: 2000UNITS
     Route: 048
  15. HYDROCODONE/TYLENOL [Concomitant]
     Indication: ROTATOR CUFF SYNDROME
     Dosage: AS NEEDED;  FORM STRENGTH: 3MG/325MG
     Route: 048

REACTIONS (2)
  - Dehydration [Not Recovered/Not Resolved]
  - Blood creatine decreased [Not Recovered/Not Resolved]

NARRATIVE: CASE EVENT DATE: 201702
